FAERS Safety Report 25829113 (Version 1)
Quarter: 2025Q3

REPORT INFORMATION
  Report Type: Spontaneous
  Country: EU (occurrence: EU)
  Receive Date: 20250922
  Receipt Date: 20250922
  Transmission Date: 20251020
  Serious: Yes (Hospitalization)
  Sender: ALEXION PHARMACEUTICALS
  Company Number: None

PATIENT
  Age: 74 Year
  Sex: Male
  Weight: 63 kg

DRUGS (2)
  1. IMJUDO [Suspect]
     Active Substance: TREMELIMUMAB\TREMELIMUMAB-ACTL
     Indication: Hepatocellular carcinoma
     Dates: start: 20250711, end: 20250711
  2. IMFINZI [Suspect]
     Active Substance: DURVALUMAB
     Indication: Hepatocellular carcinoma
     Dates: start: 20250711, end: 20250711

REACTIONS (2)
  - Acute coronary syndrome [Recovered/Resolved with Sequelae]
  - Myocarditis [Recovered/Resolved with Sequelae]

NARRATIVE: CASE EVENT DATE: 20250806
